FAERS Safety Report 10027394 (Version 1)
Quarter: 2014Q1

REPORT INFORMATION
  Report Type: Spontaneous
  Country: US (occurrence: US)
  Receive Date: 20140321
  Receipt Date: 20140321
  Transmission Date: 20141002
  Serious: No
  Sender: FDA-Public Use
  Company Number: US-PFIZER INC-2014076580

PATIENT
  Age: 81 Year
  Sex: Male
  Weight: 89.8 kg

DRUGS (6)
  1. VIAGRA [Suspect]
     Indication: ERECTILE DYSFUNCTION
     Dosage: 100 MG, AS NEEDED
     Route: 048
  2. XARELTO [Concomitant]
     Indication: TRANSIENT ISCHAEMIC ATTACK
     Dosage: 20 MG, 1X/DAY
  3. AMLODIPINE [Concomitant]
     Indication: HYPERTENSION
     Dosage: 2.5 MG, 1X/DAY
  4. METOPROLOL [Concomitant]
     Indication: HYPERTENSION
     Dosage: UNK, 2X/DAY
  5. CRESTOR [Concomitant]
     Indication: ATRIAL FIBRILLATION
     Dosage: 10 MG, 1X/DAY
  6. FINASTERIDE [Concomitant]
     Dosage: 5 MG, 1X/DAY

REACTIONS (2)
  - Flushing [Unknown]
  - Headache [Unknown]
